FAERS Safety Report 23411663 (Version 1)
Quarter: 2024Q1

REPORT INFORMATION
  Report Type: Report from Study
  Country: US (occurrence: US)
  Receive Date: 20240117
  Receipt Date: 20240117
  Transmission Date: 20240410
  Serious: Yes (Hospitalization, Other)
  Sender: FDA-Public Use
  Company Number: US-ABBVIE-4324653

PATIENT
  Age: 60 Year
  Sex: Male

DRUGS (2)
  1. IMBRUVICA [Suspect]
     Active Substance: IBRUTINIB
     Indication: Chronic lymphocytic leukaemia
     Dosage: TAKES IN THE MORNING AND DRINKING LOTS OF WATER
     Route: 048
     Dates: start: 20220505
  2. IMBRUVICA [Suspect]
     Active Substance: IBRUTINIB
     Indication: Chronic lymphocytic leukaemia
     Route: 048
     Dates: start: 20210101

REACTIONS (10)
  - Multiple organ dysfunction syndrome [Unknown]
  - Influenza [Recovered/Resolved]
  - White blood cell count increased [Unknown]
  - Fatigue [Unknown]
  - COVID-19 pneumonia [Unknown]
  - Joint swelling [Unknown]
  - Increased tendency to bruise [Unknown]
  - Rash vesicular [Recovered/Resolved]
  - Secretion discharge [Recovered/Resolved]
  - Hospitalisation [Recovered/Resolved]

NARRATIVE: CASE EVENT DATE: 20210101
